FAERS Safety Report 18570180 (Version 1)
Quarter: 2020Q4

REPORT INFORMATION
  Report Type: Report from Study
  Country: None (occurrence: PR)
  Receive Date: 20201202
  Receipt Date: 20201202
  Transmission Date: 20210114
  Serious: Yes (Other)
  Sender: FDA-Public Use
  Company Number: PR-ABBVIE-20K-131-3673855-00

PATIENT
  Age: 70 Year
  Sex: Female
  Weight: 61.74 kg

DRUGS (1)
  1. HUMIRA [Suspect]
     Active Substance: ADALIMUMAB
     Indication: RHEUMATOID ARTHRITIS
     Route: 058
     Dates: start: 20140818

REACTIONS (2)
  - Peripheral swelling [Not Recovered/Not Resolved]
  - Finger deformity [Recovering/Resolving]

NARRATIVE: CASE EVENT DATE: 202011
